FAERS Safety Report 8301775-1 (Version None)
Quarter: 2012Q1

REPORT INFORMATION
  Report Type: 
  Country: None (occurrence: None)
  Receive Date: 20120326
  Receipt Date: 20110201
  Transmission Date: 20120608
  Serious: Yes (Disabling)
  Sender: FDA-Public Use
  Company Number: PHHY2010US67611

PATIENT
  Age: 28 Year
  Sex: Male
  Weight: 68 kg

DRUGS (6)
  1. AMITRIPTYLINE HCL [Concomitant]
  2. ZOLPIDEM [Concomitant]
  3. FLUTICASONE PROPIONATE [Concomitant]
  4. TASIGNA [Suspect]
     Indication: CHRONIC MYELOID LEUKAEMIA
     Dosage: 300 MG, BID, ORAL ; 150 MG, BID, ORAL
     Route: 048
     Dates: start: 20101021
  5. TASIGNA [Suspect]
     Indication: CHRONIC MYELOID LEUKAEMIA
     Dosage: 300 MG, BID, ORAL ; 150 MG, BID, ORAL
     Route: 048
     Dates: start: 20100807, end: 20101021
  6. IBUPROFEN [Concomitant]

REACTIONS (5)
  - MUSCLE SPASMS [None]
  - PRURITUS [None]
  - FEELING HOT [None]
  - SKIN BURNING SENSATION [None]
  - BONE PAIN [None]
